FAERS Safety Report 7090223-8 (Version None)
Quarter: 2010Q4

REPORT INFORMATION
  Report Type: 
  Country: None (occurrence: None)
  Receive Date: 20101104
  Receipt Date: 20101104
  Transmission Date: 20110411
  Serious: No
  Sender: FDA-Public Use
  Company Number: None

PATIENT
  Age: 73 Year
  Sex: Male
  Weight: 101 kg

DRUGS (2)
  1. MIDAZOLAM HCL [Suspect]
     Dosage: 2 MG ONCE IV
     Route: 042
     Dates: start: 20101101, end: 20101102
  2. FENTANYL-100 [Suspect]
     Dosage: 100 MCG ONCE IV
     Route: 042
     Dates: start: 20101101, end: 20101102

REACTIONS (6)
  - AGGRESSION [None]
  - AGITATION [None]
  - CONFUSIONAL STATE [None]
  - HYPOTENSION [None]
  - PALPITATIONS [None]
  - TACHYCARDIA [None]
